FAERS Safety Report 9281653 (Version 1)
Quarter: 2013Q2

REPORT INFORMATION
  Report Type: Spontaneous
  Country: US (occurrence: US)
  Receive Date: 20130509
  Receipt Date: 20130509
  Transmission Date: 20140414
  Serious: Yes (Other)
  Sender: FDA-Public Use
  Company Number: US-MYLANLABS-2013S1009566

PATIENT
  Sex: 0

DRUGS (2)
  1. PROPRANOLOL [Suspect]
     Indication: PHACES SYNDROME
     Dosage: TITRATED TO 1.0 MG/KG/D DIVIDED 3X DAILY
     Route: 048
  2. PREDNISOLONE [Concomitant]
     Indication: PHACES SYNDROME
     Dosage: 2 MG/KG/D
     Route: 065

REACTIONS (7)
  - Arterial disorder [Recovering/Resolving]
  - Condition aggravated [Recovering/Resolving]
  - Infarction [Recovering/Resolving]
  - Cyanosis [Recovering/Resolving]
  - Nail dystrophy [Recovering/Resolving]
  - Skin ulcer [Unknown]
  - Sleep disorder [Unknown]
